FAERS Safety Report 5319830-7 (Version None)
Quarter: 2007Q2

REPORT INFORMATION
  Report Type: 
  Country: None (occurrence: None)
  Receive Date: 20070509
  Receipt Date: 20070427
  Transmission Date: 20071010
  Serious: Yes (Hospitalization, Other)
  Sender: FDA-Public Use
  Company Number: PHEH2007US06012

PATIENT
  Age: 38 Year
  Sex: Female
  Weight: 85.714 kg

DRUGS (13)
  1. GLEEVEC [Suspect]
     Indication: ACUTE LYMPHOCYTIC LEUKAEMIA
     Dosage: 400 MG, QD
     Route: 048
     Dates: start: 20070301, end: 20070406
  2. GLEEVEC [Suspect]
     Dosage: UNK, UNK
     Dates: start: 20070322, end: 20070406
  3. FUROSEMIDE [Concomitant]
  4. NEUPOGEN [Concomitant]
     Dosage: UNK, UNK
     Route: 058
     Dates: end: 20070410
  5. VINCRISTINE [Concomitant]
  6. ELSPAR [Concomitant]
  7. METHOTREXATE [Concomitant]
     Route: 039
  8. 6-MP [Concomitant]
  9. FRAGMIN [Concomitant]
  10. LISINOPRIL [Concomitant]
  11. ZOLOFT [Concomitant]
  12. SCOPOLAMINE [Concomitant]
     Route: 062
  13. NEUPOGEN [Suspect]

REACTIONS (10)
  - BRONCHIOLITIS [None]
  - CEREBROVASCULAR ACCIDENT [None]
  - CHEST X-RAY ABNORMAL [None]
  - DYSPNOEA [None]
  - HYPOXIA [None]
  - LUNG INFILTRATION [None]
  - NEUTROPENIA [None]
  - PLEURAL EFFUSION [None]
  - PLEURAL FIBROSIS [None]
  - PYREXIA [None]
